FAERS Safety Report 18532343 (Version 2)
Quarter: 2025Q2

REPORT INFORMATION
  Report Type: Spontaneous
  Country: PT (occurrence: PT)
  Receive Date: 20201123
  Receipt Date: 20250627
  Transmission Date: 20250717
  Serious: Yes (Hospitalization, Other)
  Sender: AUROBINDO
  Company Number: PT-MYLANLABS-2020M1093499

PATIENT
  Sex: Female

DRUGS (2)
  1. GEMCITABINE [Suspect]
     Active Substance: GEMCITABINE
     Indication: Product used for unknown indication
     Route: 065
  2. OXALIPLATIN [Suspect]
     Active Substance: OXALIPLATIN
     Indication: Product used for unknown indication
     Route: 065

REACTIONS (6)
  - Abdominal pain upper [Unknown]
  - Chest pain [Unknown]
  - Metastatic neoplasm [Unknown]
  - Hepatocellular carcinoma [Unknown]
  - Metastasis [Unknown]
  - Nodule [Unknown]

NARRATIVE: CASE EVENT DATE: 20130601
